FAERS Safety Report 7250249-8 (Version None)
Quarter: 2011Q1

REPORT INFORMATION
  Report Type: 
  Country: None (occurrence: None)
  Receive Date: 20110128
  Receipt Date: 20110124
  Transmission Date: 20110831
  Serious: Yes (Other)
  Sender: FDA-Public Use
  Company Number: US-ALLERGAN-1015794US

PATIENT
  Age: 45 Year
  Sex: Female

DRUGS (4)
  1. BOTOX COSMETIC [Suspect]
     Indication: SKIN WRINKLING
     Dosage: 15 UNITS, SINGLE
     Route: 030
     Dates: start: 20101111, end: 20101111
  2. BOTOX COSMETIC [Suspect]
     Dosage: UNK
     Dates: start: 20071002, end: 20071002
  3. BOTOX COSMETIC [Suspect]
     Dosage: UNK
     Dates: start: 20080206, end: 20080206
  4. BOTOX COSMETIC [Suspect]
     Dosage: UNK
     Dates: start: 20100918, end: 20100918

REACTIONS (12)
  - FATIGUE [None]
  - DYSPNOEA [None]
  - URTICARIA [None]
  - MUSCULAR WEAKNESS [None]
  - TOOTHACHE [None]
  - INJECTION SITE PAIN [None]
  - DYSKINESIA [None]
  - PARAESTHESIA [None]
  - LOSS OF CONSCIOUSNESS [None]
  - SALIVARY HYPERSECRETION [None]
  - DIZZINESS [None]
  - DIPLOPIA [None]
